FAERS Safety Report 24064883 (Version 2)
Quarter: 2025Q1

REPORT INFORMATION
  Report Type: Report from Study
  Country: BR (occurrence: BR)
  Receive Date: 20240709
  Receipt Date: 20250203
  Transmission Date: 20250409
  Serious: Yes (Other)
  Sender: TAKEDA
  Company Number: BR-TAKEDA-2024TUS066784

PATIENT
  Age: 53 Year
  Sex: Male

DRUGS (10)
  1. BRIGATINIB [Suspect]
     Active Substance: BRIGATINIB
     Indication: Non-small cell lung cancer
     Dosage: 180 MILLIGRAM, QD
     Dates: start: 202202, end: 202411
  2. ROSUVASTATIN [Concomitant]
     Active Substance: ROSUVASTATIN
     Indication: Dyslipidaemia
  3. ALLOPURINOL [Concomitant]
     Active Substance: ALLOPURINOL
     Indication: Gout
  4. ESCITALOPRAM [Concomitant]
     Active Substance: ESCITALOPRAM OXALATE
     Indication: Anxiety disorder
  5. ESCITALOPRAM [Concomitant]
     Active Substance: ESCITALOPRAM OXALATE
     Indication: Obsessive-compulsive disorder
  6. QUETIAPINE [Concomitant]
     Active Substance: QUETIAPINE
     Indication: Anxiety disorder
  7. QUETIAPINE [Concomitant]
     Active Substance: QUETIAPINE
     Indication: Obsessive-compulsive disorder
  8. QUETIAPINE [Concomitant]
     Active Substance: QUETIAPINE
     Indication: Prophylaxis
  9. ANTARA [Concomitant]
     Active Substance: FENOFIBRATE
     Indication: Prophylaxis
  10. PHENYTOIN SODIUM [Concomitant]
     Active Substance: PHENYTOIN SODIUM
     Indication: Prophylaxis

REACTIONS (12)
  - Deep vein thrombosis [Unknown]
  - Brain injury [Unknown]
  - Lung adenocarcinoma [Unknown]
  - Wound dehiscence [Unknown]
  - Parkinson^s disease [Unknown]
  - Central nervous system lesion [Unknown]
  - COVID-19 [Unknown]
  - Blood bilirubin abnormal [Unknown]
  - Blood creatine phosphokinase abnormal [Unknown]
  - Anaplastic lymphoma kinase gene mutation [Unknown]
  - Gliosis [Unknown]
  - Blood lactate dehydrogenase abnormal [Unknown]

NARRATIVE: CASE EVENT DATE: 20221201
